FAERS Safety Report 8317148-1 (Version None)
Quarter: 2012Q2

REPORT INFORMATION
  Report Type: 
  Country: None (occurrence: None)
  Receive Date: 20120425
  Receipt Date: 20120410
  Transmission Date: 20120825
  Serious: Yes (Death, Hospitalization)
  Sender: FDA-Public Use
  Company Number: 2012ST000368

PATIENT
  Age: 17 Year
  Sex: Male
  Weight: 45 kg

DRUGS (10)
  1. METHOTREXATE [Suspect]
     Indication: B PRECURSOR TYPE ACUTE LEUKAEMIA
     Dosage: ;X1;INTH
     Route: 037
     Dates: start: 20120305, end: 20120305
  2. METHOTREXATE [Suspect]
     Indication: B PRECURSOR TYPE ACUTE LEUKAEMIA
     Dosage: ;X1;INTH
     Route: 037
     Dates: start: 20120220, end: 20120220
  3. KEPPRA [Concomitant]
  4. CYTARABINE [Suspect]
     Indication: B PRECURSOR TYPE ACUTE LEUKAEMIA
     Dosage: ;X1;INTH
     Route: 037
     Dates: start: 20120220, end: 20120220
  5. PREDNISONE [Suspect]
     Indication: B PRECURSOR TYPE ACUTE LEUKAEMIA
     Dosage: 20 MG/M**2; PO
     Route: 048
     Dates: start: 20120220, end: 20120314
  6. VINCRISTINE [Suspect]
     Indication: B PRECURSOR TYPE ACUTE LEUKAEMIA
     Dosage: 1.5 MG/M**2;X1;IV
     Route: 042
     Dates: start: 20120220, end: 20120220
  7. VINCRISTINE [Suspect]
     Indication: B PRECURSOR TYPE ACUTE LEUKAEMIA
     Dosage: 1.5 MG/M**2;X1;IV
     Route: 042
     Dates: start: 20120312, end: 20120312
  8. ONCASPAR [Suspect]
     Indication: B PRECURSOR TYPE ACUTE LEUKAEMIA
     Dosage: 2500 IU/M**2;QW;IM
     Route: 030
     Dates: start: 20120220, end: 20120312
  9. DOXORUBICIN HCL [Suspect]
     Indication: B PRECURSOR TYPE ACUTE LEUKAEMIA
     Dosage: 60 UG/M**2;X1;IV
  10. VELCADE [Suspect]
     Indication: B PRECURSOR TYPE ACUTE LEUKAEMIA
     Dosage: 1.3 MG/M**2;X1;IV
     Route: 042
     Dates: start: 20120220, end: 20120220

REACTIONS (14)
  - MALNUTRITION [None]
  - CACHEXIA [None]
  - NO THERAPEUTIC RESPONSE [None]
  - LEUKAEMIA [None]
  - ALTERED STATE OF CONSCIOUSNESS [None]
  - NEOPLASM PROGRESSION [None]
  - SEPSIS [None]
  - HYPOTENSION [None]
  - GASTROINTESTINAL HAEMORRHAGE [None]
  - HAEMORRHOIDAL HAEMORRHAGE [None]
  - CONVULSION [None]
  - DIARRHOEA [None]
  - BACK PAIN [None]
  - NERVOUS SYSTEM DISORDER [None]
